FAERS Safety Report 9179589 (Version 1)
Quarter: 2012Q4

REPORT INFORMATION
  Report Type: 
  Country: AU (occurrence: AU)
  Receive Date: 20121029
  Receipt Date: 20121029
  Transmission Date: 20130627
  Serious: Yes (Hospitalization)
  Sender: FDA-Public Use
  Company Number: AU-009507513-1210AUS010341

PATIENT
  Age: 64 Year
  Sex: Female

DRUGS (5)
  1. MIRTAZAPINE [Suspect]
     Dosage: UNK
     Route: 048
     Dates: start: 201203
  2. ASPIRIN [Suspect]
     Dosage: UNK, prn
     Dates: start: 201203
  3. KRILL OIL [Suspect]
     Dosage: UNK
     Dates: start: 201203
  4. TAURINE [Suspect]
     Dosage: UNK
     Dates: start: 201203
  5. ROSUVASTATIN CALCIUM [Suspect]
     Dosage: UNK
     Dates: start: 201203

REACTIONS (1)
  - Liver injury [Not Recovered/Not Resolved]
